FAERS Safety Report 22711800 (Version 4)
Quarter: 2023Q4

REPORT INFORMATION
  Report Type: Spontaneous
  Country: JP (occurrence: JP)
  Receive Date: 20230717
  Receipt Date: 20231221
  Transmission Date: 20240110
  Serious: Yes (Other)
  Sender: FDA-Public Use
  Company Number: JP-ONO-2023JP017950

PATIENT
  Age: 8 Decade
  Sex: Male

DRUGS (1)
  1. OPDIVO [Suspect]
     Active Substance: NIVOLUMAB
     Indication: Gastric cancer
     Dosage: UNK
     Route: 041

REACTIONS (11)
  - Drug reaction with eosinophilia and systemic symptoms [Recovering/Resolving]
  - Lip haemorrhage [Unknown]
  - Lip blister [Unknown]
  - Conjunctivitis [Unknown]
  - Corneal erosion [Unknown]
  - Pustule [Unknown]
  - Erythema [Recovered/Resolved]
  - Pyrexia [Unknown]
  - Hepatic function abnormal [Unknown]
  - White blood cell count increased [Unknown]
  - Lymphadenopathy [Unknown]
